FAERS Safety Report 9239618 (Version 1)
Quarter: 2013Q2

REPORT INFORMATION
  Report Type: Spontaneous
  Country: US (occurrence: US)
  Receive Date: 20130418
  Receipt Date: 20130418
  Transmission Date: 20140414
  Serious: Yes (Hospitalization)
  Sender: FDA-Public Use
  Company Number: US-PFIZER INC-2013117661

PATIENT
  Age: 9 Year
  Sex: Male
  Weight: 32.5 kg

DRUGS (4)
  1. METHYLPHENIDATE HYDROCHLORIDE [Suspect]
     Indication: ATTENTION DEFICIT/HYPERACTIVITY DISORDER
     Dosage: 5 MG, 2X/DAY
  2. METHYLPHENIDATE HYDROCHLORIDE [Suspect]
     Dosage: 20 MG, 2X/DAY
  3. RISPERIDONE [Suspect]
     Indication: AGGRESSION
     Dosage: 0.5 MG, 2X/DAY
  4. CLONIDINE [Suspect]
     Indication: ATTENTION DEFICIT/HYPERACTIVITY DISORDER
     Dosage: 0.05 MG, 2X/DAY

REACTIONS (3)
  - Aggression [Recovering/Resolving]
  - Fatigue [Unknown]
  - Drug ineffective [Recovering/Resolving]
